FAERS Safety Report 6665526-9 (Version None)
Quarter: 2010Q2

REPORT INFORMATION
  Report Type: 
  Country: None (occurrence: None)
  Receive Date: 20100402
  Receipt Date: 20100324
  Transmission Date: 20101027
  Serious: Yes (Death, Hospitalization)
  Sender: FDA-Public Use
  Company Number: FR-JNJFOC-20100303655

PATIENT
  Age: 58 Year
  Sex: Female

DRUGS (1)
  1. REMICADE [Suspect]
     Indication: PSORIASIS
     Dosage: 23 INFUSIONS
     Route: 042

REACTIONS (3)
  - BRAIN NEOPLASM [None]
  - EPISTAXIS [None]
  - PRURITUS [None]
